FAERS Safety Report 8215263-4 (Version None)
Quarter: 2012Q1

REPORT INFORMATION
  Report Type: 
  Country: None (occurrence: None)
  Receive Date: 20120316
  Receipt Date: 20120309
  Transmission Date: 20120608
  Serious: Yes (Hospitalization)
  Sender: FDA-Public Use
  Company Number: AU-NAPPMUNDI-USA-2012-0083149

PATIENT
  Sex: Female

DRUGS (11)
  1. VITAMIN D                          /00318501/ [Concomitant]
     Indication: PRODUCT USED FOR UNKNOWN INDICATION
  2. OXYCONTIN [Suspect]
     Dosage: 10 MG, SEE TEXT
     Route: 048
  3. NALOXONE [Suspect]
     Indication: CANCER PAIN
     Dosage: UNK UNK, SEE TEXT
     Route: 048
     Dates: start: 20120216, end: 20120217
  4. LEVOTHYROXINE SODIUM [Concomitant]
     Indication: PRODUCT USED FOR UNKNOWN INDICATION
  5. OXYCONTIN [Suspect]
     Indication: CANCER PAIN
     Dosage: 40 MG, SEE TEXT
     Route: 048
  6. CALTRATE WITH VITAMIN D [Concomitant]
     Indication: PRODUCT USED FOR UNKNOWN INDICATION
  7. RABEPRAZOLE SODIUM [Concomitant]
     Indication: PRODUCT USED FOR UNKNOWN INDICATION
  8. CORDILOX [Concomitant]
     Indication: PRODUCT USED FOR UNKNOWN INDICATION
  9. FERROGRAD C [Concomitant]
     Indication: PRODUCT USED FOR UNKNOWN INDICATION
  10. VYTORIN [Concomitant]
     Indication: PRODUCT USED FOR UNKNOWN INDICATION
  11. ACETAMINOPHEN [Concomitant]
     Indication: PRODUCT USED FOR UNKNOWN INDICATION

REACTIONS (9)
  - MUSCLE SPASMS [None]
  - ANXIETY [None]
  - TREMOR [None]
  - DRUG WITHDRAWAL SYNDROME [None]
  - DIARRHOEA [None]
  - CHILLS [None]
  - DYSKINESIA [None]
  - HYPERHIDROSIS [None]
  - HYPERTENSION [None]
